FAERS Safety Report 4892391-2 (Version None)
Quarter: 2006Q1

REPORT INFORMATION
  Report Type: 
  Country: None (occurrence: None)
  Receive Date: 20060126
  Receipt Date: 20050218
  Transmission Date: 20060701
  Serious: Yes (Hospitalization)
  Sender: FDA-Public Use
  Company Number: US-MERCK-0503USA00636

PATIENT
  Age: 58 Year
  Sex: Female

DRUGS (2)
  1. VIOXX [Suspect]
     Indication: BACK PAIN
     Route: 048
     Dates: start: 20040101, end: 20040801
  2. VIOXX [Suspect]
     Route: 048
     Dates: start: 20040101, end: 20040801

REACTIONS (7)
  - BLOOD PRESSURE INCREASED [None]
  - CARDIAC DISORDER [None]
  - CARDIOVASCULAR DISORDER [None]
  - OVERDOSE [None]
  - PAIN IN EXTREMITY [None]
  - POLYTRAUMATISM [None]
  - THROMBOSIS [None]
